FAERS Safety Report 18497238 (Version 1)
Quarter: 2020Q4

REPORT INFORMATION
  Report Type: Spontaneous
  Country: AU (occurrence: AU)
  Receive Date: 20201112
  Receipt Date: 20201112
  Transmission Date: 20210114
  Serious: Yes (Hospitalization)
  Sender: FDA-Public Use
  Company Number: AU-TASMAN PHARMA, INC.-2020TSM00279

PATIENT
  Sex: Male

DRUGS (7)
  1. CLOZAPINE. [Suspect]
     Active Substance: CLOZAPINE
     Dosage: 750 MG
     Dates: start: 20200619, end: 20200927
  2. CLOZAPINE. [Suspect]
     Active Substance: CLOZAPINE
     Dosage: 750 MG
     Dates: start: 20191003, end: 20200416
  3. CLOZAPINE. [Suspect]
     Active Substance: CLOZAPINE
     Dosage: 750 MG
     Dates: start: 20200929, end: 20201004
  4. CLOZAPINE. [Suspect]
     Active Substance: CLOZAPINE
     Dosage: 750 MG
     Dates: start: 20201017, end: 20201018
  5. CLOZAPINE. [Suspect]
     Active Substance: CLOZAPINE
     Dosage: 750 MG
     Dates: start: 20201005, end: 20201016
  6. CLOZAPINE. [Suspect]
     Active Substance: CLOZAPINE
     Dosage: 750 MG
     Dates: start: 20201019
  7. CLOZAPINE. [Suspect]
     Active Substance: CLOZAPINE
     Dosage: 750 MG
     Dates: start: 20200417, end: 20200615

REACTIONS (4)
  - Hospitalisation [Unknown]
  - Product dose omission issue [Recovered/Resolved]
  - Paranoia [Unknown]
  - Unevaluable event [Recovered/Resolved]

NARRATIVE: CASE EVENT DATE: 20200928
